FAERS Safety Report 8018371-6 (Version None)
Quarter: 2012Q1

REPORT INFORMATION
  Report Type: 
  Country: None (occurrence: None)
  Receive Date: 20120103
  Receipt Date: 20111216
  Transmission Date: 20120608
  Serious: Yes (Hospitalization)
  Sender: FDA-Public Use
  Company Number: DE-UCBSA-047891

PATIENT
  Age: 53 Year

DRUGS (18)
  1. KEPPRA [Suspect]
     Indication: EPILEPSY
     Dosage: 2500
  2. SABRIL [Suspect]
     Indication: CONVULSION
  3. CARBAMAZEPINE [Suspect]
     Indication: CONVULSION
  4. VALPROATE SODIUM [Suspect]
     Dosage: 750
     Dates: start: 20100806, end: 20100812
  5. LAMICTAL [Concomitant]
     Indication: CONVULSION
  6. LYRICA [Concomitant]
  7. ZONEGRAN [Concomitant]
     Dosage: 400
  8. VIMPAT [Suspect]
     Dosage: 400
  9. VALPROATE SODIUM [Suspect]
     Dosage: 1500
     Dates: start: 20100716, end: 20100722
  10. VALPROATE SODIUM [Suspect]
     Dosage: 1000
     Dates: start: 20100730, end: 20100805
  11. TOPAMA [Concomitant]
  12. OXCARBAMACEPIN [Concomitant]
  13. VALPROATE SODIUM [Suspect]
     Dosage: 1250
     Dates: start: 20100723, end: 20100729
  14. VALPROATE SODIUM [Suspect]
     Dosage: 500
     Dates: start: 20100813, end: 20100819
  15. VALPROATE SODIUM [Concomitant]
  16. NEURONTIN [Concomitant]
  17. VALPROATE SODIUM [Suspect]
     Indication: EPILEPSY
     Dosage: 1750
     Dates: start: 20100714, end: 20100715
  18. VALPROATE SODIUM [Suspect]
     Dosage: 250
     Dates: start: 20100820

REACTIONS (5)
  - STATUS EPILEPTICUS [None]
  - AURA [None]
  - COMA [None]
  - CONVULSION [None]
  - GRAND MAL CONVULSION [None]
